FAERS Safety Report 5773722-8 (Version None)
Quarter: 2008Q2

REPORT INFORMATION
  Report Type: 
  Country: None (occurrence: None)
  Receive Date: 20080616
  Receipt Date: 20080611
  Transmission Date: 20081010
  Serious: Yes (Other)
  Sender: FDA-Public Use
  Company Number: DE-BRISTOL-MYERS SQUIBB COMPANY-14207369

PATIENT
  Age: 78 Year
  Sex: Male
  Weight: 78 kg

DRUGS (2)
  1. COUMADIN [Suspect]
     Indication: AORTIC VALVE REPLACEMENT
     Dosage: 1DOSAGE FORM:FIRST DAY 1X1TABLET THEN FOR 2DAYS 1/2TABLET
     Route: 048
  2. SIMVAHEXAL [Suspect]
     Indication: HYPERLIPIDAEMIA
     Dosage: 1DOSAGE FORM:1/2TABLET.STRENGTH:60MG
     Route: 048
     Dates: start: 20080221, end: 20080409

REACTIONS (2)
  - APHASIA [None]
  - CEREBRAL INFARCTION [None]
